FAERS Safety Report 17245910 (Version 1)
Quarter: 2019Q4

REPORT INFORMATION
  Report Type: Spontaneous
  Country: US (occurrence: US)
  Receive Date: 20191213
  Receipt Date: 20191213
  Transmission Date: 20200122
  Serious: No
  Sender: FDA-Public Use
  Company Number: None

PATIENT
  Sex: Female

DRUGS (12)
  1. PEGASYS [Suspect]
     Active Substance: PEGINTERFERON ALFA-2A
     Indication: POLYCYTHAEMIA
     Dosage: OTHER STRENGTH 180MCG/ML
     Route: 058
     Dates: start: 20170620
  2. IRON [Concomitant]
     Active Substance: IRON
  3. FOLIC ACID. [Concomitant]
     Active Substance: FOLIC ACID
  4. KETOCONAZOLE. [Concomitant]
     Active Substance: KETOCONAZOLE
  5. VENTOLIN HFA [Concomitant]
     Active Substance: ALBUTEROL SULFATE
  6. ASPIRIN. [Concomitant]
     Active Substance: ASPIRIN
  7. LEVOTHYROXIN [Concomitant]
     Active Substance: LEVOTHYROXINE
  8. FLUOCINONIDE. [Concomitant]
     Active Substance: FLUOCINONIDE
  9. TRAMADOL. [Concomitant]
     Active Substance: TRAMADOL
  10. METRONIDAZOL [Concomitant]
     Active Substance: METRONIDAZOLE
  11. TRIAMCINOLON [Concomitant]
  12. FLOVENT HFA [Concomitant]
     Active Substance: FLUTICASONE PROPIONATE

REACTIONS (1)
  - Cholecystectomy [None]
